FAERS Safety Report 7016900-2 (Version None)
Quarter: 2010Q3

REPORT INFORMATION
  Report Type: 
  Country: None (occurrence: None)
  Receive Date: 20100927
  Receipt Date: 20100917
  Transmission Date: 20110219
  Serious: Yes (Hospitalization, Other)
  Sender: FDA-Public Use
  Company Number: US-AMGEN-QUU436851

PATIENT
  Sex: Male
  Weight: 69 kg

DRUGS (15)
  1. NEULASTA [Suspect]
     Indication: CHEMOTHERAPY
     Route: 065
     Dates: start: 20100804, end: 20100804
  2. ANTINEOPLASTIC AGENTS [Concomitant]
     Route: 042
     Dates: start: 20100803, end: 20100825
  3. PREDNISONE [Concomitant]
     Route: 048
     Dates: start: 20100803
  4. COUMADIN [Concomitant]
     Route: 048
     Dates: start: 20100628
  5. AMLODIPINE [Concomitant]
     Dates: start: 20100413
  6. BENICAR [Concomitant]
     Route: 048
     Dates: start: 20100511
  7. CLONAZEPAM [Concomitant]
     Route: 048
     Dates: start: 20091006
  8. METOPROLOL TARTRATE [Concomitant]
     Route: 048
     Dates: start: 20091006
  9. MIRTAZAPINE [Concomitant]
     Route: 048
     Dates: start: 20100420
  10. TEMAZEPAM [Concomitant]
     Route: 048
     Dates: start: 20100420
  11. VYTORIN [Concomitant]
     Route: 048
     Dates: start: 20100511, end: 20100807
  12. ROCALTROL [Concomitant]
  13. CALCIUM CARBONATE [Concomitant]
  14. SEROQUEL [Concomitant]
  15. PREVACID [Concomitant]

REACTIONS (5)
  - BRADYCARDIA [None]
  - INTERNATIONAL NORMALISED RATIO INCREASED [None]
  - NEUTROPENIA [None]
  - RENAL FAILURE ACUTE [None]
  - URINARY TRACT INFECTION [None]
